FAERS Safety Report 21639551 (Version 2)
Quarter: 2023Q2

REPORT INFORMATION
  Report Type: Report from Study
  Country: US (occurrence: US)
  Receive Date: 20221124
  Receipt Date: 20230404
  Transmission Date: 20230722
  Serious: No
  Sender: FDA-Public Use
  Company Number: US-ABBVIE-22K-163-4468152-00

PATIENT
  Sex: Male

DRUGS (3)
  1. HUMIRA [Suspect]
     Active Substance: ADALIMUMAB
     Indication: Colitis ulcerative
     Dosage: CITRATE FREE, STRENGTH- 40 MG
     Route: 058
     Dates: start: 202112
  2. HUMIRA [Suspect]
     Active Substance: ADALIMUMAB
     Dosage: CITRATE FREE, STRENGTH- 40 MG
     Route: 058
     Dates: start: 20221027
  3. HUMIRA [Suspect]
     Active Substance: ADALIMUMAB
     Dosage: CITRATE FREE, STRENGTH- 40 MG
     Dates: start: 20211129, end: 202112

REACTIONS (9)
  - Adverse food reaction [Unknown]
  - Off label use [Unknown]
  - Frequent bowel movements [Unknown]
  - Drug ineffective [Unknown]
  - Defaecation urgency [Unknown]
  - Flatulence [Unknown]
  - Stress [Unknown]
  - Diarrhoea [Unknown]
  - Loss of personal independence in daily activities [Unknown]
